FAERS Safety Report 8903993 (Version 3)
Quarter: 2013Q2

REPORT INFORMATION
  Report Type: Report from Study
  Country: JP (occurrence: JP)
  Receive Date: 20121112
  Receipt Date: 20130510
  Transmission Date: 20140414
  Serious: Yes (Life-Threatening)
  Sender: FDA-Public Use
  Company Number: JP-JNJFOC-20121103542

PATIENT
  Age: 83 Year
  Sex: Male
  Weight: 45 kg

DRUGS (14)
  1. SIMPONI [Suspect]
     Indication: RHEUMATOID ARTHRITIS
     Route: 058
     Dates: end: 20121010
  2. PREDNISOLONE [Concomitant]
     Indication: RHEUMATOID ARTHRITIS
     Route: 048
     Dates: start: 20120523, end: 20120912
  3. PREDNISOLONE [Concomitant]
     Indication: RHEUMATOID ARTHRITIS
     Route: 048
     Dates: start: 20120912
  4. PREDNISOLONE [Concomitant]
     Indication: RHEUMATOID ARTHRITIS
     Route: 048
     Dates: start: 20120912, end: 20121012
  5. PREDNISOLONE [Concomitant]
     Indication: RHEUMATOID ARTHRITIS
     Route: 048
     Dates: start: 20120523, end: 20120620
  6. METHOTREXATE [Concomitant]
     Indication: RHEUMATOID ARTHRITIS
     Dates: end: 20121010
  7. CELECOXIB [Concomitant]
     Indication: PROPHYLAXIS
     Route: 048
     Dates: start: 20120912
  8. ISONIAZID [Concomitant]
     Indication: PROPHYLAXIS
     Route: 048
  9. CALCIUM [Concomitant]
     Indication: OSTEOPOROSIS
  10. FUROSEMIDE [Concomitant]
  11. FOLIC ACID [Concomitant]
     Indication: PROPHYLAXIS
     Route: 048
  12. SODIUM RISEDRONATE [Concomitant]
     Indication: OSTEOPOROSIS
     Route: 048
  13. HYDROCORTISONE ACETATE [Concomitant]
     Route: 061
  14. COCARL [Concomitant]
     Indication: RHEUMATOID ARTHRITIS
     Route: 048

REACTIONS (2)
  - Pneumonia [Recovered/Resolved]
  - Rheumatoid arthritis [Unknown]
